FAERS Safety Report 4439960-1 (Version None)
Quarter: 2004Q3

REPORT INFORMATION
  Report Type: 
  Country: None (occurrence: None)
  Receive Date: 20040831
  Receipt Date: 20040713
  Transmission Date: 20050211
  Serious: No
  Sender: FDA-Public Use
  Company Number: 701845

PATIENT
  Sex: Male

DRUGS (7)
  1. AMEVIVE [Suspect]
     Indication: PSORIASIS
     Dosage: 15 MG QW IM
     Route: 030
     Dates: end: 20040412
  2. GLYBURIDE [Concomitant]
  3. GLUCOPHAGE ^UNS^ [Concomitant]
  4. FOLIC ACID [Concomitant]
  5. ZOCOR [Concomitant]
  6. PRINIVIL [Concomitant]
  7. AVANDIA [Concomitant]

REACTIONS (1)
  - CD4 LYMPHOCYTES DECREASED [None]
